FAERS Safety Report 4443096-3 (Version None)
Quarter: 2004Q3

REPORT INFORMATION
  Report Type: 
  Country: None (occurrence: None)
  Receive Date: 20040903
  Receipt Date: 20040602
  Transmission Date: 20050211
  Serious: Yes (Other)
  Sender: FDA-Public Use
  Company Number: 2004UW11461

PATIENT
  Age: 77 Year
  Sex: Female
  Weight: 72.1219 kg

DRUGS (7)
  1. CRESTOR [Suspect]
     Indication: HYPERCHOLESTEROLAEMIA
     Dosage: 10 MG QD PO
     Route: 048
  2. CRESTOR [Suspect]
     Indication: HYPERCHOLESTEROLAEMIA
     Dosage: 20 MG QD PO
     Route: 048
  3. ARIMIDEX [Concomitant]
  4. KLONOPIN [Concomitant]
  5. ATENOLOL [Concomitant]
  6. SYNTHROID [Concomitant]
  7. TOFRONOL [Concomitant]

REACTIONS (6)
  - APHONIA [None]
  - CONSTIPATION [None]
  - DIZZINESS [None]
  - HEADACHE [None]
  - MUSCULOSKELETAL STIFFNESS [None]
  - POSTNASAL DRIP [None]
